FAERS Safety Report 9025295 (Version 2)
Quarter: 2013Q1

REPORT INFORMATION
  Report Type: Report from Study
  Country: GB (occurrence: GB)
  Receive Date: 20130122
  Receipt Date: 20130322
  Transmission Date: 20140127
  Serious: Yes (Death)
  Sender: FDA-Public Use
  Company Number: GB-UCBSA-075815

PATIENT
  Age: 79 Year
  Sex: Female

DRUGS (19)
  1. CERTOLIZUMAB PEGOL [Suspect]
     Indication: RHEUMATOID ARTHRITIS
     Route: 058
     Dates: start: 20110704
  2. PREDNISOLONE [Concomitant]
     Dosage: UNKNOWN DOSE
  3. FOLIC ACID [Concomitant]
     Dosage: UNKNOWN DOSE
  4. CO-CODAMOL [Concomitant]
     Dosage: UNKNOWN DOSE
  5. METHOTREXATE [Concomitant]
     Dates: start: 201109
  6. ADCAL D3 [Concomitant]
     Dosage: UNKNOWN DOSE
  7. BISOPROLOL [Concomitant]
     Dosage: UNKNOWN DOSE
  8. LACTULOSE [Concomitant]
  9. SITAGLIPTIN [Concomitant]
     Dosage: UNKNOWN DOSE
  10. BUPRENORPHINE [Concomitant]
     Dosage: UNKNOWN DOSE
  11. GLICLAZIDE [Concomitant]
     Dosage: UNKNOWN DOSE
  12. FUROSEMIDE [Concomitant]
     Dosage: UNKNOWN DOSE
  13. LANSOPRAZOLE [Concomitant]
     Dosage: UNKNOWN DOSE
  14. ASPIRIN [Concomitant]
     Dosage: UNKNOWN DOSE
  15. DIGOXIN [Concomitant]
     Dosage: UNKNOWN DOSE
  16. AMITRIPTYLINE [Concomitant]
     Dosage: UNKNOWN DOSE
  17. FERROUS SULPHATE [Concomitant]
     Dosage: UNKNOWN DOSE
  18. TEMAZEPAM [Concomitant]
     Dosage: UNKNOWN DOSE
  19. RAMIPRIL [Concomitant]
     Dosage: UNKNOWN DOSE

REACTIONS (2)
  - Pneumonia [Fatal]
  - Cardiac failure congestive [Fatal]
